FAERS Safety Report 17315869 (Version 1)
Quarter: 2020Q1

REPORT INFORMATION
  Report Type: Spontaneous
  Country: CA (occurrence: CA)
  Receive Date: 20200124
  Receipt Date: 20200124
  Transmission Date: 20200409
  Serious: Yes (Other)
  Sender: FDA-Public Use
  Company Number: CA-JACOBUS PHARMACEUTICAL COMPANY, INC.-2079374

PATIENT
  Age: 68 Year
  Sex: Male

DRUGS (5)
  1. DAPSONE. [Suspect]
     Active Substance: DAPSONE
  2. PREDNISONE. [Concomitant]
     Active Substance: PREDNISONE
  3. WARFARIN SODIUM. [Concomitant]
     Active Substance: WARFARIN SODIUM
  4. RITUXIMAB. [Concomitant]
     Active Substance: RITUXIMAB
  5. REVOLADE [Suspect]
     Active Substance: ELTROMBOPAG
     Route: 048

REACTIONS (5)
  - Methaemoglobinaemia [Not Recovered/Not Resolved]
  - Platelet count decreased [Not Recovered/Not Resolved]
  - Immune thrombocytopenic purpura [Not Recovered/Not Resolved]
  - Disease recurrence [Not Recovered/Not Resolved]
  - Therapy non-responder [None]
